FAERS Safety Report 5121483-8 (Version None)
Quarter: 2006Q4

REPORT INFORMATION
  Report Type: 
  Country: None (occurrence: None)
  Receive Date: 20061006
  Receipt Date: 20060929
  Transmission Date: 20070319
  Serious: Yes (Other)
  Sender: FDA-Public Use
  Company Number: US-BAYER-200614176BCC

PATIENT
  Age: 25 Year
  Sex: Female
  Weight: 59 kg

DRUGS (3)
  1. ALKA SELTZER PLUS EFFERVESCENT COLD + COUGH [Suspect]
     Indication: NASOPHARYNGITIS
     Dosage: TOTAL DAILY DOSE: 30 MG  UNIT DOSE: 5 MG
     Route: 048
     Dates: start: 20060913, end: 20060913
  2. MINOCYCLINE HCL [Concomitant]
  3. VELIZET [Concomitant]

REACTIONS (6)
  - DISORIENTATION [None]
  - FALL [None]
  - JOINT DISLOCATION [None]
  - PAIN IN EXTREMITY [None]
  - SENSATION OF HEAVINESS [None]
  - SKIN TIGHTNESS [None]
